FAERS Safety Report 24549838 (Version 1)
Quarter: 2024Q4

REPORT INFORMATION
  Report Type: Spontaneous
  Country: US (occurrence: US)
  Receive Date: 20241025
  Receipt Date: 20241025
  Transmission Date: 20250115
  Serious: No
  Sender: AMGEN
  Company Number: US-AMGEN-USASP2024211692

PATIENT
  Sex: Female

DRUGS (2)
  1. MVASI [Suspect]
     Active Substance: BEVACIZUMAB-AWWB
     Indication: Colon cancer
     Dosage: 1425 MILLIGRAM, Q3WK
     Route: 065
  2. MVASI [Suspect]
     Active Substance: BEVACIZUMAB-AWWB
     Dosage: 1425 MILLIGRAM, Q3WK
     Route: 065
     Dates: end: 20241022

REACTIONS (2)
  - Nasopharyngitis [Unknown]
  - Off label use [Unknown]
